FAERS Safety Report 7745960-6 (Version None)
Quarter: 2011Q3

REPORT INFORMATION
  Report Type: 
  Country: None (occurrence: None)
  Receive Date: 20110913
  Receipt Date: 20110909
  Transmission Date: 20111222
  Serious: No
  Sender: FDA-Public Use
  Company Number: US-PFIZER INC-2011212809

PATIENT
  Sex: Male
  Weight: 124.7 kg

DRUGS (1)
  1. NEURONTIN [Suspect]
     Dosage: UNK, 1X/DAY
     Route: 048
     Dates: start: 20080101, end: 20080101

REACTIONS (2)
  - HYPERSENSITIVITY [None]
  - SOMNOLENCE [None]
